FAERS Safety Report 25152982 (Version 1)
Quarter: 2025Q2

REPORT INFORMATION
  Report Type: Spontaneous
  Country: CN (occurrence: CN)
  Receive Date: 20250403
  Receipt Date: 20250403
  Transmission Date: 20250716
  Serious: Yes (Hospitalization, Disabling)
  Sender: BEIGENE
  Company Number: CN-BEIGENE-BGN-2025-004974

PATIENT
  Age: 45 Year
  Weight: 37.5 kg

DRUGS (16)
  1. TISLELIZUMAB [Suspect]
     Active Substance: TISLELIZUMAB
     Indication: Pancreatic carcinoma
     Dosage: 200 MILLIGRAM, Q3WK
  2. TISLELIZUMAB [Suspect]
     Active Substance: TISLELIZUMAB
     Indication: Retroperitoneal cancer
     Dosage: 200 MILLIGRAM, Q3WK
  3. TISLELIZUMAB [Suspect]
     Active Substance: TISLELIZUMAB
     Dosage: 200 MILLIGRAM, Q3WK
     Route: 041
  4. TISLELIZUMAB [Suspect]
     Active Substance: TISLELIZUMAB
     Dosage: 200 MILLIGRAM, Q3WK
     Route: 041
  5. TISLELIZUMAB [Suspect]
     Active Substance: TISLELIZUMAB
     Dosage: UNK UNK, Q3WK
  6. TISLELIZUMAB [Suspect]
     Active Substance: TISLELIZUMAB
     Dosage: UNK UNK, Q3WK
  7. TISLELIZUMAB [Suspect]
     Active Substance: TISLELIZUMAB
     Dosage: UNK UNK, Q3WK
  8. TISLELIZUMAB [Suspect]
     Active Substance: TISLELIZUMAB
     Dosage: UNK UNK, Q3WK
  9. PACLITAXEL [Concomitant]
     Active Substance: PACLITAXEL
     Indication: Pancreatic carcinoma
  10. PACLITAXEL [Concomitant]
     Active Substance: PACLITAXEL
  11. GEMCITABINE [Concomitant]
     Active Substance: GEMCITABINE
     Indication: Pancreatic carcinoma
  12. GEMCITABINE [Concomitant]
     Active Substance: GEMCITABINE
  13. GEMCITABINE [Concomitant]
     Active Substance: GEMCITABINE
  14. CATEQUENTINIB [Concomitant]
     Active Substance: CATEQUENTINIB
     Indication: Pancreatic carcinoma
  15. SODIUM CHLORIDE [Concomitant]
     Active Substance: SODIUM CHLORIDE
     Indication: Vehicle solution use
     Dosage: 100 MILLILITER, Q3WK
     Route: 041
  16. SODIUM CHLORIDE [Concomitant]
     Active Substance: SODIUM CHLORIDE
     Dosage: 100 MILLILITER, Q3WK

REACTIONS (3)
  - Glucocorticoid deficiency [Recovering/Resolving]
  - Hyponatraemia [Recovering/Resolving]
  - Hypochloraemia [Recovering/Resolving]
